FAERS Safety Report 8612091-2 (Version None)
Quarter: 2012Q3

REPORT INFORMATION
  Report Type: 
  Country: None (occurrence: None)
  Receive Date: 20120822
  Receipt Date: 20120814
  Transmission Date: 20120928
  Serious: Yes (Disabling)
  Sender: FDA-Public Use
  Company Number: GB-TEVA-353689ISR

PATIENT
  Age: 22 Year
  Sex: Male
  Weight: 69.85 kg

DRUGS (2)
  1. FINASTERIDE [Suspect]
     Indication: ALOPECIA
     Dosage: STANDARD
     Route: 048
     Dates: start: 20120515, end: 20120615
  2. RANITIDINE [Concomitant]

REACTIONS (1)
  - TESTICULAR ATROPHY [None]
